FAERS Safety Report 18817192 (Version 2)
Quarter: 2021Q1

REPORT INFORMATION
  Report Type: Spontaneous
  Country: FR (occurrence: FR)
  Receive Date: 20210201
  Receipt Date: 20210203
  Transmission Date: 20210419
  Serious: Yes (Hospitalization)
  Sender: FDA-Public Use
  Company Number: FR-MYLANLABS-2019M1029116

PATIENT
  Age: 63 Year
  Sex: Male

DRUGS (17)
  1. ATRIANCE [Suspect]
     Active Substance: NELARABINE
     Indication: LYMPHOMA
     Dosage: 1300 MILLIGRAM, QD
     Route: 042
     Dates: start: 20180926, end: 20180930
  2. CYCLOPHOSPHAMIDE. [Suspect]
     Active Substance: CYCLOPHOSPHAMIDE
     Indication: CHRONIC LYMPHOCYTIC LEUKAEMIA
  3. ETOPOSIDE. [Suspect]
     Active Substance: ETOPOSIDE
     Indication: CHRONIC LYMPHOCYTIC LEUKAEMIA
  4. HYDROCORTANCYL                     /00016201/ [Suspect]
     Active Substance: PREDNISONE
     Indication: LYMPHOMA
     Dosage: UNK
     Route: 037
     Dates: start: 20180921
  5. METHOTREXATE. [Suspect]
     Active Substance: METHOTREXATE
     Indication: LYMPHOMA
     Dosage: 21/09, 27/09, 01/10, 09/10 AND 19/10
     Route: 037
     Dates: start: 20180921, end: 20181019
  6. ONDANSETRON [Concomitant]
     Active Substance: ONDANSETRON
     Dosage: UNK
  7. ETOPOSIDE. [Suspect]
     Active Substance: ETOPOSIDE
     Indication: LYMPHOMA
     Dosage: 200 MILLIGRAM, QD
     Route: 042
     Dates: start: 20180926, end: 20180930
  8. ATRIANCE [Suspect]
     Active Substance: NELARABINE
     Indication: CHRONIC LYMPHOCYTIC LEUKAEMIA
  9. YDRALBUM [Concomitant]
     Active Substance: ALBUMIN HUMAN
     Dosage: UNK
  10. CYTARABINE. [Suspect]
     Active Substance: CYTARABINE
     Indication: CHRONIC LYMPHOCYTIC LEUKAEMIA
     Dosage: 21/09, 27/09, 01/10, 09/10 AND 19/10
     Route: 037
     Dates: start: 20180921, end: 20181019
  11. NOXAFIL [Suspect]
     Active Substance: POSACONAZOLE
     Indication: INFECTION PROPHYLAXIS
     Dosage: 300 MG X 2 / D FOR 2 DAYS THEN 300 MG / D
     Route: 048
     Dates: start: 20181005
  12. VALACYCLOVIR [Suspect]
     Active Substance: VALACYCLOVIR HYDROCHLORIDE
     Indication: HERPES SIMPLEX
     Dosage: 1000 MILLIGRAM, QD
     Route: 048
     Dates: start: 20181005
  13. CORTANCYL [Suspect]
     Active Substance: PREDNISONE
     Indication: PROPHYLAXIS OF NAUSEA AND VOMITING
     Dosage: 120 MG/D AT A REGRESSIVE DOSE UP TO 40 MG/D
     Route: 048
     Dates: start: 20180921
  14. VIALEBEX [Concomitant]
     Active Substance: ALBUMIN HUMAN
     Dosage: UNK
  15. CYCLOPHOSPHAMIDE. [Suspect]
     Active Substance: CYCLOPHOSPHAMIDE
     Indication: LYMPHOMA
     Dosage: 600 MILLIGRAM, QD
     Route: 042
     Dates: start: 20180926, end: 20180930
  16. CYTARABINE. [Suspect]
     Active Substance: CYTARABINE
     Indication: LYMPHOMA
     Dosage: UNK
     Route: 037
     Dates: start: 20180921
  17. ALLOPURINOL ARROW [Suspect]
     Active Substance: ALLOPURINOL
     Indication: TUMOUR LYSIS SYNDROME
     Dosage: 500 MILLIGRAM, QD
     Route: 048
     Dates: start: 20180926

REACTIONS (4)
  - Oedema [Not Recovered/Not Resolved]
  - Neuropathy peripheral [Not Recovered/Not Resolved]
  - Mucosal inflammation [Recovered/Resolved]
  - Herpes simplex reactivation [Recovered/Resolved]

NARRATIVE: CASE EVENT DATE: 201810
